FAERS Safety Report 15795636 (Version 1)
Quarter: 2019Q1

REPORT INFORMATION
  Report Type: Spontaneous
  Country: US (occurrence: US)
  Receive Date: 20190107
  Receipt Date: 20190107
  Transmission Date: 20190417
  Serious: No
  Sender: FDA-Public Use
  Company Number: US-MYLANLABS-2018M1094246

PATIENT
  Sex: Male
  Weight: 136 kg

DRUGS (1)
  1. LIDOCAINE PATCH [Suspect]
     Active Substance: LIDOCAINE
     Indication: NEUROPATHY PERIPHERAL
     Route: 003

REACTIONS (3)
  - Product adhesion issue [Not Recovered/Not Resolved]
  - Off label use [Unknown]
  - Product quality issue [Not Recovered/Not Resolved]
